FAERS Safety Report 11362665 (Version 1)
Quarter: 2015Q3

REPORT INFORMATION
  Report Type: Spontaneous
  Country: DE (occurrence: DE)
  Receive Date: 20150810
  Receipt Date: 20150810
  Transmission Date: 20151125
  Serious: Yes (Hospitalization, Other)
  Sender: FDA-Public Use
  Company Number: DE-ELI_LILLY_AND_COMPANY-DE201507009590

PATIENT
  Age: 47 Year
  Sex: Female

DRUGS (17)
  1. TAVOR [Concomitant]
     Active Substance: LORAZEPAM
     Indication: PRODUCT USED FOR UNKNOWN INDICATION
     Dosage: 2 MG, UNKNOWN
     Route: 048
     Dates: start: 20090923, end: 20090924
  2. TAVOR [Concomitant]
     Active Substance: LORAZEPAM
     Dosage: 2 MG, UNKNOWN
     Route: 048
     Dates: start: 20091005, end: 20091008
  3. ZYPREXA [Interacting]
     Active Substance: OLANZAPINE
     Indication: PRODUCT USED FOR UNKNOWN INDICATION
     Dosage: 40 MG, UNKNOWN
     Route: 065
     Dates: start: 20090923, end: 20090929
  4. TAVOR [Concomitant]
     Active Substance: LORAZEPAM
     Dosage: 4 MG, UNKNOWN
     Route: 048
     Dates: start: 20091001, end: 20091005
  5. TAVOR [Concomitant]
     Active Substance: LORAZEPAM
     Dosage: 4 MG, UNKNOWN
     Route: 048
     Dates: start: 20091012, end: 20091016
  6. TAVOR [Concomitant]
     Active Substance: LORAZEPAM
     Dosage: 2 MG, UNKNOWN
     Route: 048
     Dates: start: 20091016, end: 20091027
  7. TAVOR [Concomitant]
     Active Substance: LORAZEPAM
     Dosage: 1 MG, UNKNOWN
     Route: 048
     Dates: start: 20091027, end: 20091029
  8. ORFIRIL [Suspect]
     Active Substance: VALPROIC ACID
     Dosage: 2400 MG, UNKNOWN
     Route: 048
     Dates: start: 20091013, end: 20091029
  9. TAVOR [Concomitant]
     Active Substance: LORAZEPAM
     Dosage: 1 MG, UNKNOWN
     Route: 048
     Dates: start: 20091008, end: 20091009
  10. TAVOR [Concomitant]
     Active Substance: LORAZEPAM
     Dosage: 2 MG, UNKNOWN
     Route: 048
     Dates: start: 20091009, end: 20091012
  11. ZYPREXA [Interacting]
     Active Substance: OLANZAPINE
     Dosage: 30 MG, UNKNOWN
     Route: 048
     Dates: start: 20091029, end: 20091110
  12. ORFIRIL [Suspect]
     Active Substance: VALPROIC ACID
     Indication: PRODUCT USED FOR UNKNOWN INDICATION
     Dosage: 2000 MG, UNKNOWN
     Route: 048
     Dates: start: 20090925, end: 20091013
  13. LAMOTRIGIN [Interacting]
     Active Substance: LAMOTRIGINE
     Indication: PRODUCT USED FOR UNKNOWN INDICATION
     Dosage: 200 MG, UNKNOWN
     Route: 048
     Dates: start: 20090923, end: 20091204
  14. ZOLDEM [Concomitant]
     Active Substance: ZOLPIDEM TARTRATE
     Indication: PRODUCT USED FOR UNKNOWN INDICATION
     Dosage: UNK, UNKNOWN
     Route: 048
     Dates: start: 20090923, end: 20091119
  15. SEROQUEL [Concomitant]
     Active Substance: QUETIAPINE FUMARATE
     Indication: PRODUCT USED FOR UNKNOWN INDICATION
     Dosage: 300 MG, UNKNOWN
     Route: 048
     Dates: start: 20091110, end: 20091119
  16. ORFIRIL [Suspect]
     Active Substance: VALPROIC ACID
     Dosage: 1800 MG, UNKNOWN
     Route: 048
     Dates: start: 20091029, end: 20091112
  17. TAVOR [Concomitant]
     Active Substance: LORAZEPAM
     Dosage: 6 MG, UNKNOWN
     Route: 048
     Dates: start: 20090924, end: 20091001

REACTIONS (7)
  - Dysarthria [Recovered/Resolved]
  - Seizure [Unknown]
  - Depression [Recovered/Resolved]
  - Toxic encephalopathy [Recovered/Resolved]
  - Prescribed overdose [Unknown]
  - Parkinsonism [Recovered/Resolved]
  - Drug interaction [Unknown]

NARRATIVE: CASE EVENT DATE: 20090923
